FAERS Safety Report 16654566 (Version 8)
Quarter: 2020Q1

REPORT INFORMATION
  Report Type: Report from Study
  Country: CZ (occurrence: CZ)
  Receive Date: 20190801
  Receipt Date: 20200110
  Transmission Date: 20200409
  Serious: Yes (Death, Hospitalization)
  Sender: FDA-Public Use
  Company Number: CZ-ROCHE-2352962

PATIENT
  Sex: Female
  Weight: 60 kg

DRUGS (3)
  1. OBINUTUZUMAB. [Suspect]
     Active Substance: OBINUTUZUMAB
     Indication: B-CELL LYMPHOMA
     Dosage: DATE OF LAST DOSE PRIOR TO ABDOMINAL PAIN ON 25/JUN/2019 AND PRIOR TO STOMACH PAIN, VOMITING AND WEA
     Route: 042
     Dates: start: 20190611
  2. ZANUBRUTINIB [Suspect]
     Active Substance: ZANUBRUTINIB
     Indication: B-CELL LYMPHOMA
     Dosage: TWO 80-MG CAPSULES BY MOUTH TWICE A DAY (160 MG TWICE A DAY)?RESTARTED ON 17/JUL/2019?DATE OF LAST D
     Route: 048
     Dates: start: 20190611
  3. TORECAN [Concomitant]
     Active Substance: THIETHYLPERAZINE MALATE
     Indication: NAUSEA
     Route: 042
     Dates: start: 20190723, end: 20190730

REACTIONS (5)
  - Abdominal pain upper [Recovering/Resolving]
  - Abdominal pain [Recovered/Resolved]
  - Asthenia [Recovering/Resolving]
  - Infection [Recovered/Resolved]
  - Vomiting [Recovering/Resolving]

NARRATIVE: CASE EVENT DATE: 20190706
